FAERS Safety Report 6391343-3 (Version None)
Quarter: 2009Q4

REPORT INFORMATION
  Report Type: 
  Country: None (occurrence: None)
  Receive Date: 20091007
  Receipt Date: 20091001
  Transmission Date: 20100525
  Serious: Yes (Other)
  Sender: FDA-Public Use
  Company Number: US-TEVA-211265USA

PATIENT
  Sex: Female

DRUGS (4)
  1. AMPHETAMINES [Suspect]
  2. VENLAFAXINE [Suspect]
  3. ARIPIPRAZOLE [Suspect]
  4. TRAZODONE [Suspect]

REACTIONS (5)
  - CONFUSIONAL STATE [None]
  - HYPERHIDROSIS [None]
  - JOINT SWELLING [None]
  - SEROTONIN SYNDROME [None]
  - SKIN DISCOLOURATION [None]
